FAERS Safety Report 6092663-2 (Version None)
Quarter: 2009Q1

REPORT INFORMATION
  Report Type: 
  Country: None (occurrence: None)
  Receive Date: 20090225
  Receipt Date: 20090218
  Transmission Date: 20090719
  Serious: Yes (Other)
  Sender: FDA-Public Use
  Company Number: PHHY2009FR05932

PATIENT
  Sex: Male

DRUGS (3)
  1. VOLTAREN [Suspect]
     Indication: BACK PAIN
     Dosage: 100 MGPER DAY
  2. OGAST [Concomitant]
     Dosage: UNK
  3. KARDEGIC [Concomitant]
     Dosage: 100 MG, UNK

REACTIONS (5)
  - BLOOD IRON DECREASED [None]
  - FATIGUE [None]
  - HAEMATOCHEZIA [None]
  - HAEMOGLOBIN DECREASED [None]
  - RED BLOOD CELL SEDIMENTATION RATE DECREASED [None]
